FAERS Safety Report 4556556-1 (Version None)
Quarter: 2005Q1

REPORT INFORMATION
  Report Type: 
  Country: None (occurrence: None)
  Receive Date: 20050114
  Receipt Date: 20041227
  Transmission Date: 20050727
  Serious: Yes (Death, Other)
  Sender: FDA-Public Use
  Company Number: WAES 0412FRA00081

PATIENT
  Age: 9 Day
  Sex: Female

DRUGS (3)
  1. INDOCIN I.V. [Suspect]
     Indication: PATENT DUCTUS ARTERIOSUS
     Dosage: IV
     Route: 042
     Dates: start: 20040508, end: 20040509
  2. DOPAMINE HCL [Concomitant]
  3. IBUPROFEN [Concomitant]

REACTIONS (13)
  - BACTERIAL INFECTION [None]
  - CONDITION AGGRAVATED [None]
  - DRUG INEFFECTIVE [None]
  - ENTEROCOLITIS [None]
  - EYE INFECTION STAPHYLOCOCCAL [None]
  - NEONATAL DISORDER [None]
  - NEONATAL HYPOXIA [None]
  - OLIGURIA [None]
  - RENAL FAILURE [None]
  - RENAL IMPAIRMENT [None]
  - SEPTIC SHOCK [None]
  - STAPHYLOCOCCAL INFECTION [None]
  - THROMBOCYTOPENIA NEONATAL [None]
